FAERS Safety Report 20370065 (Version 1)
Quarter: 2022Q1

REPORT INFORMATION
  Report Type: Spontaneous
  Country: US (occurrence: None)
  Receive Date: 20220122
  Receipt Date: 20220122
  Transmission Date: 20220423
  Serious: Yes (Death)
  Sender: FDA-Public Use
  Company Number: None

PATIENT
  Age: 98 Year
  Sex: Female
  Weight: 54 kg

DRUGS (1)
  1. ERIVEDGE [Suspect]
     Active Substance: VISMODEGIB
     Indication: Basal cell carcinoma
     Dosage: FREQUENCY : DAILY;?
     Route: 048
     Dates: start: 20170831, end: 20220115

REACTIONS (1)
  - Death [None]

NARRATIVE: CASE EVENT DATE: 20220115
